FAERS Safety Report 14028088 (Version 1)
Quarter: 2017Q3

REPORT INFORMATION
  Report Type: Spontaneous
  Country: US (occurrence: US)
  Receive Date: 20170929
  Receipt Date: 20170929
  Transmission Date: 20171128
  Serious: Yes (Other)
  Sender: FDA-Public Use
  Company Number: None

PATIENT
  Age: 53 Year
  Sex: Female
  Weight: 74.25 kg

DRUGS (1)
  1. MELOXICAM. [Suspect]
     Active Substance: MELOXICAM
     Indication: PLANTAR FASCIITIS
     Route: 048
     Dates: start: 20140401, end: 20170920

REACTIONS (4)
  - Oral lichen planus [None]
  - Nasal disorder [None]
  - Rhinalgia [None]
  - Rhinorrhoea [None]

NARRATIVE: CASE EVENT DATE: 20141214
